FAERS Safety Report 8623496-8 (Version None)
Quarter: 2012Q3

REPORT INFORMATION
  Report Type: 
  Country: None (occurrence: None)
  Receive Date: 20120827
  Receipt Date: 20120821
  Transmission Date: 20120928
  Serious: No
  Sender: FDA-Public Use
  Company Number: US-PFIZER INC-2012162429

PATIENT
  Age: 65 Year
  Sex: Male
  Weight: 83.9 kg

DRUGS (6)
  1. LIPITOR [Suspect]
     Indication: BLOOD CHOLESTEROL INCREASED
     Dosage: 85 MG, DAILY
     Route: 048
     Dates: end: 20120704
  2. TRICOR [Concomitant]
     Dosage: 145 MG, DAILY
  3. ACETYLSALICYLIC ACID [Concomitant]
     Dosage: 81 MG, DAILY
  4. LIPITOR [Suspect]
     Dosage: UNK
     Dates: end: 20120818
  5. METOPROLOL [Concomitant]
     Dosage: 25 MG, DAILY
  6. LISINOPRIL [Concomitant]
     Dosage: 10 MG, DAILY

REACTIONS (1)
  - DRUG INEFFECTIVE [None]
